FAERS Safety Report 4555643-1 (Version None)
Quarter: 2005Q1

REPORT INFORMATION
  Report Type: 
  Country: None (occurrence: None)
  Receive Date: 20050119
  Receipt Date: 20050111
  Transmission Date: 20050727
  Serious: Yes (Death)
  Sender: FDA-Public Use
  Company Number: US-JNJFOC-20040808172

PATIENT
  Sex: Female
  Weight: 55.02 kg

DRUGS (1)
  1. DURAGESIC [Suspect]
     Indication: CANCER PAIN
     Route: 062
     Dates: end: 20040606

REACTIONS (2)
  - MALIGNANT NEOPLASM PROGRESSION [None]
  - MULTIPLE MYELOMA [None]
